FAERS Safety Report 10809745 (Version 1)
Quarter: 2015Q1

REPORT INFORMATION
  Report Type: Report from Study
  Country: US (occurrence: US)
  Receive Date: 20150217
  Receipt Date: 20150217
  Transmission Date: 20150721
  Serious: No
  Sender: FDA-Public Use
  Company Number: US-ABBVIE-14K-163-1228737-00

PATIENT
  Age: 21 Year
  Sex: Male

DRUGS (4)
  1. IRON [Concomitant]
     Active Substance: IRON
     Indication: MINERAL SUPPLEMENTATION
  2. HYDROCODONE [Concomitant]
     Active Substance: HYDROCODONE
     Indication: PAIN
     Dosage: 5/500 MG
  3. HYDROCODONE [Concomitant]
     Active Substance: HYDROCODONE
     Indication: INSOMNIA
  4. HUMIRA [Suspect]
     Active Substance: ADALIMUMAB
     Indication: COLITIS ULCERATIVE
     Dates: start: 20131112

REACTIONS (2)
  - Drug dose omission [Not Recovered/Not Resolved]
  - Incorrect product storage [Unknown]

NARRATIVE: CASE EVENT DATE: 20140420
